FAERS Safety Report 7932309-9 (Version None)
Quarter: 2011Q4

REPORT INFORMATION
  Report Type: 
  Country: None (occurrence: None)
  Receive Date: 20111121
  Receipt Date: 20111116
  Transmission Date: 20120403
  Serious: Yes (Other)
  Sender: FDA-Public Use
  Company Number: US-TEVA-309566USA

PATIENT
  Sex: Female

DRUGS (6)
  1. ALPRAZOLAM [Concomitant]
  2. YAZ? (DROSPIRENONE/ETHINYL ESTRADIOL) [Concomitant]
  3. OBETROL [Concomitant]
  4. COPAXONE [Suspect]
     Indication: MULTIPLE SCLEROSIS
     Route: 058
     Dates: start: 20110701
  5. MORNIFLUMATE [Concomitant]
  6. CITALOPRAM HYDROBROMIDE [Concomitant]

REACTIONS (5)
  - LARYNGEAL OEDEMA [None]
  - OEDEMA [None]
  - URTICARIA [None]
  - IMMEDIATE POST-INJECTION REACTION [None]
  - DYSPNOEA [None]
